FAERS Safety Report 23428990 (Version 1)
Quarter: 2024Q1

REPORT INFORMATION
  Report Type: Spontaneous
  Country: US (occurrence: US)
  Receive Date: 20240122
  Receipt Date: 20240122
  Transmission Date: 20240410
  Serious: No
  Sender: FDA-Public Use
  Company Number: US-PFIZER INC-PV202400006768

PATIENT
  Age: 11 Year
  Sex: Male
  Weight: 53 kg

DRUGS (3)
  1. NYVEPRIA [Suspect]
     Active Substance: PEGFILGRASTIM-APGF
     Indication: Bone cancer
     Dosage: 0.6 ML (ONCE 24 HOURS POST CHEMOTHERAPY EVERY 14 DAYS)
     Route: 058
  2. NYVEPRIA [Suspect]
     Active Substance: PEGFILGRASTIM-APGF
     Indication: Chondrosarcoma
  3. NYVEPRIA [Suspect]
     Active Substance: PEGFILGRASTIM-APGF
     Indication: Ewing^s sarcoma

REACTIONS (1)
  - Off label use [Unknown]
